FAERS Safety Report 11715137 (Version 1)
Quarter: 2015Q4

REPORT INFORMATION
  Report Type: Report from Study
  Country: FR (occurrence: FR)
  Receive Date: 20151109
  Receipt Date: 20151109
  Transmission Date: 20160304
  Serious: Yes (Other)
  Sender: FDA-Public Use
  Company Number: FR-BAXALTA-2015BLT002586

PATIENT

DRUGS (1)
  1. GAMMAGARD [Suspect]
     Active Substance: HUMAN IMMUNOGLOBULIN G
     Indication: TRANSPLANT REJECTION
     Dosage: 2 G/KG, GIVEN OVER 48 HOURS IN 4 WEEK-INTERVALS
     Route: 042

REACTIONS (1)
  - Haemolytic anaemia [Unknown]
